FAERS Safety Report 4752710-4 (Version None)
Quarter: 2005Q3

REPORT INFORMATION
  Report Type: 
  Country: None (occurrence: None)
  Receive Date: 20050823
  Receipt Date: 20050510
  Transmission Date: 20060218
  Serious: Yes (Other)
  Sender: FDA-Public Use
  Company Number: 2005073095

PATIENT
  Age: 88 Year
  Sex: Female

DRUGS (2)
  1. NORVASC [Suspect]
     Indication: ILL-DEFINED DISORDER
  2. ARICEPT [Suspect]
     Indication: ILL-DEFINED DISORDER

REACTIONS (2)
  - APPETITE DISORDER [None]
  - WEIGHT DECREASED [None]
